FAERS Safety Report 24450684 (Version 1)
Quarter: 2024Q4

REPORT INFORMATION
  Report Type: Spontaneous
  Country: US (occurrence: None)
  Receive Date: 20241016
  Receipt Date: 20241016
  Transmission Date: 20250115
  Serious: Yes (Other)
  Sender: Public
  Company Number: None

PATIENT
  Age: 64 Year
  Sex: Female
  Weight: 53.52 kg

DRUGS (23)
  1. TACROLIMUS [Suspect]
     Active Substance: TACROLIMUS
     Indication: Lung transplant
     Dosage: FREQUENCY : TWICE A DAY;?OTHER ROUTE : VIA G-TUBE;?
     Route: 050
     Dates: start: 20240201
  2. MYCOPHENOLATE MOFETIL [Suspect]
     Active Substance: MYCOPHENOLATE MOFETIL
     Indication: Lung transplant
     Dosage: FREQUENCY : TWICE A DAY;?OTHER ROUTE : VIA G-TUBE;?
     Route: 050
     Dates: start: 20240201
  3. sulfamethoxazole/trimethoprim 800/160 mg tablet [Concomitant]
     Dates: start: 20240201
  4. AMLODIPINE BESYLATE [Concomitant]
     Active Substance: AMLODIPINE BESYLATE
  5. ELIQUIS [Concomitant]
     Active Substance: APIXABAN
  6. bupropion 75 mg tablet [Concomitant]
  7. hydroxyzine 25 mg tablet [Concomitant]
  8. olanzapine 5 mg ODT [Concomitant]
  9. ROSUVASTATIN [Concomitant]
     Active Substance: ROSUVASTATIN
  10. ferrous sulfate elixir 220 mg/5 mL [Concomitant]
  11. AMITRIPTYLINE HYDROCHLORIDE [Concomitant]
     Active Substance: AMITRIPTYLINE HYDROCHLORIDE
  12. melatonin 3 mg tablet [Concomitant]
  13. Zolpidem 10 mg tablet [Concomitant]
  14. CARVEDILOL [Concomitant]
     Active Substance: CARVEDILOL
  15. PREDNISONE [Concomitant]
     Active Substance: PREDNISONE
  16. tizanidine 2 mg tablet [Concomitant]
  17. mupirocin 2 % ointment [Concomitant]
  18. tramadol 50 mg tablet [Concomitant]
  19. cetirizine 10 mg tablet [Concomitant]
  20. LANSOPRAZOLE [Concomitant]
     Active Substance: LANSOPRAZOLE
  21. polyethylene glycol 3350 NF powder pack [Concomitant]
  22. MIRTAZAPINE [Concomitant]
     Active Substance: MIRTAZAPINE
  23. magnesium gluconate 500 mg tablet [Concomitant]

REACTIONS (1)
  - Squamous cell carcinoma [None]

NARRATIVE: CASE EVENT DATE: 20240724
